FAERS Safety Report 4361168-9 (Version None)
Quarter: 2004Q2

REPORT INFORMATION
  Report Type: 
  Country: None (occurrence: None)
  Receive Date: 20040507
  Receipt Date: 20031204
  Transmission Date: 20050107
  Serious: Yes (Other)
  Sender: FDA-Public Use
  Company Number: PHEH2003US10933

PATIENT
  Age: 76 Year
  Sex: Female

DRUGS (11)
  1. TEGRETOL [Suspect]
     Dosage: 200 MG, TID, ORAL
     Route: 048
     Dates: start: 20031128, end: 20031130
  2. ACTONEL /USA/RISEDRONATE SODIUM) [Concomitant]
  3. CYCLOBENZAPRINE HYDROCHLORIDE [Concomitant]
  4. ASPIRIN [Concomitant]
  5. CALCIUM [Concomitant]
  6. LORTAB [Concomitant]
  7. SIMVASTATIN [Concomitant]
  8. LOPRESSOR [Concomitant]
  9. PREVACID [Concomitant]
  10. LISINOPRIL [Concomitant]
  11. HUMALOG MIX (INSULIN LISPRO) [Concomitant]

REACTIONS (4)
  - ABNORMAL BEHAVIOUR [None]
  - CONFUSIONAL STATE [None]
  - MEDICATION ERROR [None]
  - SOMNOLENCE [None]
